FAERS Safety Report 20280481 (Version 2)
Quarter: 2022Q1

REPORT INFORMATION
  Report Type: Spontaneous
  Country: FR (occurrence: FR)
  Receive Date: 20220103
  Receipt Date: 20220113
  Transmission Date: 20220423
  Serious: Yes (Disabling, Other)
  Sender: FDA-Public Use
  Company Number: FR-SANOFI-00913478

PATIENT
  Age: 81 Year
  Sex: Female

DRUGS (15)
  1. IRBESARTAN [Suspect]
     Active Substance: IRBESARTAN
     Dosage: 1 DF, QD (1 TAB IN THE MORNING)
  2. EUTHYROX [Concomitant]
     Active Substance: LEVOTHYROXINE SODIUM
     Dosage: 75 UG
  3. LERCANIDIPINE [Concomitant]
     Active Substance: LERCANIDIPINE
     Dosage: 10 MG
  4. URAPIDIL [Concomitant]
     Active Substance: URAPIDIL
     Dosage: 30 MG
  5. NEBIVOLOL HYDROCHLORIDE [Concomitant]
     Active Substance: NEBIVOLOL HYDROCHLORIDE
     Dosage: 5 MG
  6. IMOVANE [Concomitant]
     Active Substance: ZOPICLONE
     Dosage: 3.75 MG
  7. ZOCOR [Concomitant]
     Active Substance: SIMVASTATIN
     Dosage: 20 MG
  8. DOLIPRANE [Concomitant]
     Active Substance: ACETAMINOPHEN
     Dosage: STRENGTH: 500 CAPSULES
  9. CARBOMER [Concomitant]
     Active Substance: CARBOMER
  10. LACRIGEL [CARBOMER] [Concomitant]
  11. DACRYOSERUM [BORIC ACID;SODIUM BORATE] [Concomitant]
  12. PHLOROGLUCINOL [Concomitant]
     Active Substance: PHLOROGLUCINOL
  13. CHONDROITIN SULFATE (CHICKEN) [Concomitant]
     Active Substance: CHONDROITIN SULFATE (CHICKEN)
  14. ASPIRIN [Concomitant]
     Active Substance: ASPIRIN
  15. RILMENIDINE PHOSPHATE [Concomitant]
     Active Substance: RILMENIDINE PHOSPHATE
     Dosage: UNK

REACTIONS (16)
  - Nephrolithiasis [Not Recovered/Not Resolved]
  - Blister [Not Recovered/Not Resolved]
  - Constipation [Not Recovered/Not Resolved]
  - Hypoacusis [Not Recovered/Not Resolved]
  - Dyspepsia [Not Recovered/Not Resolved]
  - Hiatus hernia [Not Recovered/Not Resolved]
  - Irritable bowel syndrome [Not Recovered/Not Resolved]
  - Osteoarthritis [Not Recovered/Not Resolved]
  - Ovarian cyst [Not Recovered/Not Resolved]
  - Renal cyst [Not Recovered/Not Resolved]
  - Diverticulum [Not Recovered/Not Resolved]
  - Fibromyalgia [Not Recovered/Not Resolved]
  - Osteosclerosis [Not Recovered/Not Resolved]
  - Abdominal pain upper [Unknown]
  - Dyspnoea [Unknown]
  - Thyroidectomy [Not Recovered/Not Resolved]

NARRATIVE: CASE EVENT DATE: 20181101
